FAERS Safety Report 8192745 (Version 3)
Quarter: 2013Q3

REPORT INFORMATION
  Report Type: Spontaneous
  Country: US (occurrence: US)
  Receive Date: 20111021
  Receipt Date: 20130730
  Transmission Date: 20140515
  Serious: Yes (Hospitalization, Other)
  Sender: FDA-Public Use
  Company Number: US-BAYER-2011-094934

PATIENT
  Age: 19 Year
  Sex: Female
  Weight: 54 kg

DRUGS (5)
  1. YAZ [Suspect]
     Indication: ACNE
  2. XIFAXAN [Concomitant]
     Dosage: UNK
     Dates: start: 2002
  3. CEFUROXIME [Concomitant]
     Dosage: UNK
     Dates: start: 2008
  4. LORAZEPAM [Concomitant]
     Dosage: UNK
     Dates: start: 1995
  5. LOESTRIN FE [Concomitant]
     Dosage: UNK
     Dates: start: 200907

REACTIONS (26)
  - Portal vein thrombosis [None]
  - Budd-Chiari syndrome [None]
  - Hepatic encephalopathy [None]
  - Pulmonary embolism [None]
  - Nodular regenerative hyperplasia [None]
  - Local swelling [None]
  - Abdominal distension [None]
  - Injury [None]
  - Pain [None]
  - Blood urine present [None]
  - Anxiety [None]
  - Anhedonia [None]
  - Increased tendency to bruise [None]
  - Amenorrhoea [None]
  - Insomnia [None]
  - Mental disorder [None]
  - Depressed mood [None]
  - Unevaluable event [None]
  - Disturbance in attention [None]
  - Metrorrhagia [None]
  - Pyrexia [None]
  - Nausea [None]
  - Mental status changes [None]
  - Chest pain [None]
  - Swelling [None]
  - Abdominal pain [None]
